APPROVED DRUG PRODUCT: HYDROMORPHONE HYDROCHLORIDE
Active Ingredient: HYDROMORPHONE HYDROCHLORIDE
Strength: 10MG/ML
Dosage Form/Route: INJECTABLE;INJECTION
Application: A074317 | Product #001
Applicant: WATSON LABORATORIES INC
Approved: Aug 23, 1995 | RLD: No | RS: No | Type: DISCN